FAERS Safety Report 9667780 (Version 2)
Quarter: 2014Q3

REPORT INFORMATION
  Report Type: Spontaneous
  Country: US (occurrence: None)
  Receive Date: 20131101
  Receipt Date: 20140801
  Transmission Date: 20150326
  Serious: Yes (Hospitalization, Other)
  Sender: FDA-Public Use
  Company Number: 2013-003351

PATIENT
  Age: 62 Year
  Sex: Female

DRUGS (15)
  1. GLUCOSAMINE [Concomitant]
     Active Substance: GLUCOSAMINE
  2. BONIVA [Suspect]
     Active Substance: IBANDRONATE SODIUM
     Indication: OSTEOPOROSIS
     Dosage: DOSAGE/ FREQUENCY UNKNOWN, UNKNOWN
     Route: 048
     Dates: start: 20070426, end: 201112
  3. LEVSIN (HYOSCYAMINE SULFATE) [Concomitant]
  4. RESTASIS (CICLOSPORIN) [Concomitant]
  5. METROGEL (METRONIDAZOLE) [Concomitant]
  6. SKELAXIN (METAXALONE) [Concomitant]
  7. MULTIVITAMIN (VITAMIN NOS) [Concomitant]
  8. DIOVAN HCT (HYDROCHLOROTHIAZIDE, VALSARTAN) [Concomitant]
  9. VERAMYST (FLUTICASONE FUROATE) [Concomitant]
  10. CALCIUM [Concomitant]
     Active Substance: CALCIUM
  11. PREMARIN (ESTROGENS CONJUGATED) [Concomitant]
  12. CELEBREX [Concomitant]
     Active Substance: CELECOXIB
  13. ACTONEL [Suspect]
     Active Substance: RISEDRONATE SODIUM
     Indication: OSTEOPOROSIS
     Dosage: DOSAGE/FREQUENCY UNKNOWN
     Route: 048
     Dates: start: 20060501
  14. TORSEMIDE (TORASEMIDE) [Concomitant]
  15. COLECALCIFEROL [Concomitant]
     Active Substance: CHOLECALCIFEROL

REACTIONS (8)
  - Stress fracture [None]
  - Bone disorder [None]
  - Low turnover osteopathy [None]
  - Pain [None]
  - Fracture malunion [None]
  - Arthralgia [None]
  - Pathological fracture [None]
  - Femur fracture [None]

NARRATIVE: CASE EVENT DATE: 20110905
